FAERS Safety Report 9836271 (Version 1)
Quarter: 2014Q1

REPORT INFORMATION
  Report Type: Report from Study
  Country: US (occurrence: US)
  Receive Date: 20140123
  Receipt Date: 20140123
  Transmission Date: 20141002
  Serious: Yes (Other)
  Sender: FDA-Public Use
  Company Number: US-ROCHE-1333874

PATIENT
  Sex: 0

DRUGS (1)
  1. BONIVA [Suspect]
     Indication: PRODUCT USED FOR UNKNOWN INDICATION
     Route: 065

REACTIONS (3)
  - Tooth extraction [Unknown]
  - Tooth disorder [Unknown]
  - Bone fragmentation [Unknown]
